FAERS Safety Report 16862961 (Version 2)
Quarter: 2020Q1

REPORT INFORMATION
  Report Type: Report from Study
  Country: DE (occurrence: DE)
  Receive Date: 20190927
  Receipt Date: 20200131
  Transmission Date: 20200409
  Serious: Yes (Hospitalization, Other)
  Sender: FDA-Public Use
  Company Number: PHHY2019DE223282

PATIENT
  Age: 42 Year
  Sex: Male
  Weight: 104 kg

DRUGS (2)
  1. COSENTYX [Suspect]
     Active Substance: SECUKINUMAB
     Indication: PSORIASIS
     Dosage: 150 MG, UNK
     Route: 058
     Dates: start: 20160606
  2. COSENTYX [Suspect]
     Active Substance: SECUKINUMAB
     Indication: PSORIATIC ARTHROPATHY

REACTIONS (22)
  - Abdominal abscess [Recovered/Resolved]
  - Peritonitis [Recovered/Resolved]
  - Intestinal atony [Recovering/Resolving]
  - Procedural nausea [Recovering/Resolving]
  - Procedural vomiting [Recovering/Resolving]
  - Psoriasis [Unknown]
  - Colitis [Unknown]
  - Mechanical ileus [Recovering/Resolving]
  - Appendicitis [Recovered/Resolved]
  - Abdominal pain lower [Recovered/Resolved]
  - Pneumonia [Recovering/Resolving]
  - Intestinal dilatation [Unknown]
  - Diarrhoea [Recovered/Resolved]
  - Gastrointestinal disorder [Recovering/Resolving]
  - Diverticulitis [Unknown]
  - Fusobacterium test positive [Unknown]
  - Blood pressure abnormal [Unknown]
  - Troponin increased [Unknown]
  - Cardiothoracic ratio increased [Unknown]
  - Body temperature increased [Unknown]
  - White blood cell count increased [Unknown]
  - General physical health deterioration [Unknown]

NARRATIVE: CASE EVENT DATE: 20190801
